FAERS Safety Report 20557416 (Version 2)
Quarter: 2022Q1

REPORT INFORMATION
  Report Type: Spontaneous
  Country: US (occurrence: US)
  Receive Date: 20220307
  Receipt Date: 20220309
  Transmission Date: 20220424
  Serious: Yes (Other)
  Sender: FDA-Public Use
  Company Number: US-drreddys-LIT/USA/22/0147435

PATIENT
  Age: 73 Year
  Sex: Male

DRUGS (20)
  1. DOXORUBICIN HYDROCHLORIDE [Suspect]
     Active Substance: DOXORUBICIN HYDROCHLORIDE
     Indication: Colon cancer
     Dosage: 2 CYCLES EVERY 21 DAYS
  2. DOXORUBICIN HYDROCHLORIDE [Suspect]
     Active Substance: DOXORUBICIN HYDROCHLORIDE
     Indication: Metastases to lung
  3. DOXORUBICIN HYDROCHLORIDE [Suspect]
     Active Substance: DOXORUBICIN HYDROCHLORIDE
     Indication: Diffuse large B-cell lymphoma
  4. DOXORUBICIN HYDROCHLORIDE [Suspect]
     Active Substance: DOXORUBICIN HYDROCHLORIDE
     Indication: Renal cell carcinoma
  5. RITUXIMAB [Suspect]
     Active Substance: RITUXIMAB
     Indication: Colon cancer
     Dosage: 2 CYCLES EVERY 21 DAYS
  6. RITUXIMAB [Suspect]
     Active Substance: RITUXIMAB
     Indication: Metastases to lung
  7. RITUXIMAB [Suspect]
     Active Substance: RITUXIMAB
     Indication: Diffuse large B-cell lymphoma
  8. RITUXIMAB [Suspect]
     Active Substance: RITUXIMAB
     Indication: Renal cell carcinoma
  9. CYCLOPHOSPHAMIDE [Suspect]
     Active Substance: CYCLOPHOSPHAMIDE
     Indication: Colon cancer
     Dosage: 2 CYCLES EVERY 21 DAYS.
  10. CYCLOPHOSPHAMIDE [Suspect]
     Active Substance: CYCLOPHOSPHAMIDE
     Indication: Metastases to lung
  11. CYCLOPHOSPHAMIDE [Suspect]
     Active Substance: CYCLOPHOSPHAMIDE
     Indication: Diffuse large B-cell lymphoma
  12. CYCLOPHOSPHAMIDE [Suspect]
     Active Substance: CYCLOPHOSPHAMIDE
     Indication: Renal cell carcinoma
  13. VINCRISTINE [Suspect]
     Active Substance: VINCRISTINE
     Indication: Colon cancer
     Dosage: 2 CYCLES EVERY 21 DAYS.
  14. VINCRISTINE [Suspect]
     Active Substance: VINCRISTINE
     Indication: Metastases to lung
  15. VINCRISTINE [Suspect]
     Active Substance: VINCRISTINE
     Indication: Diffuse large B-cell lymphoma
  16. VINCRISTINE [Suspect]
     Active Substance: VINCRISTINE
     Indication: Renal cell carcinoma
  17. PREDNISONE [Suspect]
     Active Substance: PREDNISONE
     Indication: Colon cancer
     Dosage: 2 CYCLES EVERY 21 DAYS
  18. PREDNISONE [Suspect]
     Active Substance: PREDNISONE
     Indication: Metastases to lung
  19. PREDNISONE [Suspect]
     Active Substance: PREDNISONE
     Indication: Diffuse large B-cell lymphoma
  20. PREDNISONE [Suspect]
     Active Substance: PREDNISONE
     Indication: Renal cell carcinoma

REACTIONS (2)
  - Cardiotoxicity [Unknown]
  - Angina pectoris [Unknown]
